FAERS Safety Report 23301050 (Version 1)
Quarter: 2023Q4

REPORT INFORMATION
  Report Type: Spontaneous
  Country: US (occurrence: None)
  Receive Date: 20231214
  Receipt Date: 20231214
  Transmission Date: 20240110
  Serious: Yes (unspecified)
  Sender: FDA-Public Use
  Company Number: None

PATIENT
  Age: 79 Year
  Sex: Female
  Weight: 72.9 kg

DRUGS (20)
  1. DALIRESP [Suspect]
     Active Substance: ROFLUMILAST
     Indication: Chronic obstructive pulmonary disease
     Dosage: FREQUENCY : DAILY;?
     Route: 048
     Dates: start: 20230119, end: 20231208
  2. ONDANSETRON [Concomitant]
     Active Substance: ONDANSETRON
     Dates: start: 20231009, end: 20231214
  3. ACETAMINOPHEN [Concomitant]
     Active Substance: ACETAMINOPHEN
  4. BUSPIRONE [Concomitant]
     Active Substance: BUSPIRONE HYDROCHLORIDE
  5. HYDROCHLOROTHIAZIDE\LOSARTAN [Concomitant]
     Active Substance: HYDROCHLOROTHIAZIDE\LOSARTAN
  6. ALPRAZOLAM [Concomitant]
     Active Substance: ALPRAZOLAM
  7. TIMOLOL [Concomitant]
     Active Substance: TIMOLOL
  8. FAMOTIDINE [Concomitant]
     Active Substance: FAMOTIDINE
  9. SIMVASTATIN [Concomitant]
     Active Substance: SIMVASTATIN
  10. ipratropium nasal 0.06% [Concomitant]
  11. CHOLECALCIFEROL [Concomitant]
     Active Substance: CHOLECALCIFEROL
  12. morphine sulfate concentrate [Concomitant]
  13. TRAVOPROST [Concomitant]
     Active Substance: TRAVOPROST
  14. latanonprostene [Concomitant]
  15. ESCITALOPRAM [Concomitant]
     Active Substance: ESCITALOPRAM OXALATE
  16. PANTOPRAZOLE [Concomitant]
     Active Substance: PANTOPRAZOLE
  17. trelegy 100 [Concomitant]
  18. LEVALBUTEROL [Concomitant]
     Active Substance: LEVALBUTEROL
  19. LEVOTHYROXINE [Concomitant]
     Active Substance: LEVOTHYROXINE
  20. MYRBETRIQ [Concomitant]
     Active Substance: MIRABEGRON

REACTIONS (7)
  - Depression [None]
  - Apathy [None]
  - Movement disorder [None]
  - Eating disorder [None]
  - Diarrhoea [None]
  - Asthenia [None]
  - Fatigue [None]

NARRATIVE: CASE EVENT DATE: 20231208
